FAERS Safety Report 16937745 (Version 2)
Quarter: 2019Q4

REPORT INFORMATION
  Report Type: Spontaneous
  Country: JP (occurrence: JP)
  Receive Date: 20191018
  Receipt Date: 20191227
  Transmission Date: 20200122
  Serious: Yes (Other)
  Sender: FDA-Public Use
  Company Number: JP-ASTRAZENECA-2019SE43303

PATIENT
  Age: 47 Year
  Sex: Male
  Weight: 61 kg

DRUGS (2)
  1. DOCETAXEL. [Suspect]
     Active Substance: DOCETAXEL
     Indication: NON-SMALL CELL LUNG CANCER
     Dosage: 65 MG
     Route: 065
     Dates: start: 20180813, end: 20180917
  2. IMFINZI [Suspect]
     Active Substance: DURVALUMAB
     Indication: NON-SMALL CELL LUNG CANCER
     Route: 041
     Dates: start: 20181002, end: 20190919

REACTIONS (5)
  - Hypoaesthesia [Recovering/Resolving]
  - Radiation pneumonitis [Recovering/Resolving]
  - Non-small cell lung cancer recurrent [Unknown]
  - Musculoskeletal pain [Recovering/Resolving]
  - Tumour marker increased [Unknown]

NARRATIVE: CASE EVENT DATE: 20190305
